FAERS Safety Report 22108694 (Version 1)
Quarter: 2023Q1

REPORT INFORMATION
  Report Type: Spontaneous
  Country: JP (occurrence: JP)
  Receive Date: 20230317
  Receipt Date: 20230317
  Transmission Date: 20230417
  Serious: Yes (Other)
  Sender: FDA-Public Use
  Company Number: JP-GLAXOSMITHKLINE-JP2022JPN029636

PATIENT

DRUGS (7)
  1. DAPRODUSTAT [Suspect]
     Active Substance: DAPRODUSTAT
     Indication: Nephrogenic anaemia
     Dosage: 4 MG
     Route: 048
     Dates: start: 202201
  2. DAPRODUSTAT [Suspect]
     Active Substance: DAPRODUSTAT
     Dosage: 6 MG
     Route: 048
     Dates: start: 202201
  3. DAPRODUSTAT [Suspect]
     Active Substance: DAPRODUSTAT
     Dosage: 8 MG
     Route: 048
     Dates: end: 20220407
  4. DARBEPOETIN ALFA [Concomitant]
     Active Substance: DARBEPOETIN ALFA
     Indication: Nephrogenic anaemia
     Dosage: 60 ?G/WEEK
     Dates: start: 202111, end: 202201
  5. ROXADUSTAT [Concomitant]
     Active Substance: ROXADUSTAT
     Dosage: 70 MG, 3 TIMES A WEEK
     Dates: start: 202110, end: 202111
  6. VADADUSTAT [Concomitant]
     Active Substance: VADADUSTAT
     Dosage: 300 MG
     Dates: start: 20220408
  7. VADADUSTAT [Concomitant]
     Active Substance: VADADUSTAT
     Dosage: 600 MG
     Dates: start: 20220422, end: 2022

REACTIONS (6)
  - Nausea [Recovering/Resolving]
  - Colon cancer [Unknown]
  - Gastrointestinal haemorrhage [Recovered/Resolved]
  - Therapeutic product effect incomplete [Unknown]
  - Product use issue [Unknown]
  - Off label use [Unknown]
